FAERS Safety Report 19256492 (Version 1)
Quarter: 2021Q2

REPORT INFORMATION
  Report Type: Spontaneous
  Country: CN (occurrence: CN)
  Receive Date: 20210513
  Receipt Date: 20210513
  Transmission Date: 20210717
  Serious: Yes (Other)
  Sender: FDA-Public Use
  Company Number: NVSC2021CN105911

PATIENT
  Age: 64 Year
  Sex: Female
  Weight: 54 kg

DRUGS (3)
  1. CARBAMAZEPINE. [Suspect]
     Active Substance: CARBAMAZEPINE
     Indication: BONE PAIN
     Dosage: 0.2 G, QD
     Route: 048
     Dates: start: 20210314, end: 20210325
  2. MOXIFLOXACIN HYDROCHLORIDE. [Suspect]
     Active Substance: MOXIFLOXACIN HYDROCHLORIDE
     Indication: PNEUMONITIS
     Dosage: 0.4 G, QD
     Route: 041
     Dates: start: 20210314, end: 20210322
  3. PIPERACILLIN AND TAZOBACTAM [Suspect]
     Active Substance: PIPERACILLIN SODIUM\TAZOBACTAM SODIUM
     Indication: PNEUMONITIS
     Dosage: 4.5 G, Q8H (ROUTE: PUMP INJECTION)
     Route: 065
     Dates: start: 20210322, end: 20210324

REACTIONS (1)
  - Erythema multiforme [Recovering/Resolving]

NARRATIVE: CASE EVENT DATE: 20210322
